FAERS Safety Report 19244330 (Version 3)
Quarter: 2021Q3

REPORT INFORMATION
  Report Type: Spontaneous
  Country: AR (occurrence: AR)
  Receive Date: 20210511
  Receipt Date: 20210914
  Transmission Date: 20211014
  Serious: Yes (Hospitalization, Other)
  Sender: FDA-Public Use
  Company Number: AR-PFIZER INC-2021481258

PATIENT
  Age: 63 Year
  Sex: Male

DRUGS (2)
  1. SUTENT [Suspect]
     Active Substance: SUNITINIB MALATE
     Indication: METASTATIC RENAL CELL CARCINOMA
     Dosage: 50 MG, CYCLIC, UNSPECIFIED SCHEME
     Dates: start: 20170507, end: 202102
  2. SUTENT [Suspect]
     Active Substance: SUNITINIB MALATE
     Dosage: 50 MG, CYCLIC (DAILY DURING 14 DAYS AND RESTING DURING 14 DAYS)

REACTIONS (9)
  - Off label use [Unknown]
  - Hypersensitivity [Unknown]
  - Nausea [Unknown]
  - Anaemia [Unknown]
  - Gastrointestinal disorder [Unknown]
  - Gait inability [Unknown]
  - Malaise [Unknown]
  - Skin exfoliation [Unknown]
  - Fistula [Unknown]

NARRATIVE: CASE EVENT DATE: 202012
